FAERS Safety Report 4304453-9 (Version None)
Quarter: 2004Q1

REPORT INFORMATION
  Report Type: 
  Country: None (occurrence: None)
  Receive Date: 20040225
  Receipt Date: 20040218
  Transmission Date: 20041129
  Serious: Yes (Hospitalization)
  Sender: FDA-Public Use
  Company Number: NITR20040002

PATIENT
  Age: 27 Year
  Sex: Female

DRUGS (5)
  1. NITROGLYCERIN [Suspect]
     Indication: HYPERTENSION
     Dosage: 0.8 MG TWICE SL
     Route: 060
  2. MAGNESIUM SULFATE [Concomitant]
  3. URAPIDIL [Concomitant]
  4. METOPROLOL [Concomitant]
  5. VERAPAMIL [Concomitant]

REACTIONS (18)
  - BLINDNESS [None]
  - BLOOD PRESSURE INCREASED [None]
  - CAESAREAN SECTION [None]
  - COMA [None]
  - COMPLICATIONS OF MATERNAL EXPOSURE TO THERAPEUTIC DRUGS [None]
  - COMPUTERISED TOMOGRAM ABNORMAL [None]
  - CONDITION AGGRAVATED [None]
  - ENCEPHALOPATHY [None]
  - GRAND MAL CONVULSION [None]
  - HEADACHE [None]
  - LOSS OF CONSCIOUSNESS [None]
  - MENTAL IMPAIRMENT [None]
  - NAUSEA [None]
  - PRE-ECLAMPSIA [None]
  - STUPOR [None]
  - VISION BLURRED [None]
  - VISUAL DISTURBANCE [None]
  - VOMITING [None]
